FAERS Safety Report 21630327 (Version 2)
Quarter: 2022Q4

REPORT INFORMATION
  Report Type: Report from Study
  Country: DE (occurrence: DE)
  Receive Date: 20221122
  Receipt Date: 20221207
  Transmission Date: 20230112
  Serious: Yes (Hospitalization, Other)
  Sender: FDA-Public Use
  Company Number: DE-CELLTRION INC.-2022DE019236

PATIENT

DRUGS (4)
  1. RITUXIMAB [Suspect]
     Active Substance: RITUXIMAB
     Indication: Diffuse large B-cell lymphoma
     Dosage: C2 D1, DRUG WILL BE ADMINISTERED AT A DOSE OF 375 MG/M2 INTRAVENOUSLY ON DAY 1 OF EACH 21-DAY CYCLE
     Route: 042
     Dates: start: 20220927, end: 20220927
  2. ETOPOSIDE [Suspect]
     Active Substance: ETOPOSIDE
     Indication: Diffuse large B-cell lymphoma
     Dosage: C2 D2, C2 D3, DRUG 100 MG/M2 WILL BE ADMINISTERED I.V. ON CYCLE DAYS 1, 2 AND 3.
     Route: 042
     Dates: start: 20220927, end: 20220929
  3. IFOSFAMIDE [Suspect]
     Active Substance: IFOSFAMIDE
     Indication: Diffuse large B-cell lymphoma
     Dosage: C2 D2, DRUG 5000 MG/M2 WILL BE ADMINISTERED I.V. OVER A 24 HR PERIOD STARTING ON CYCLE DAY 2.
     Route: 042
     Dates: start: 20220928, end: 20220929
  4. CARBOPLATIN [Suspect]
     Active Substance: CARBOPLATIN
     Indication: Diffuse large B-cell lymphoma
     Dosage: C2 D2, DRUG AUC 5 MAX 800 MG WILL BE ADMINISTERED I.V. ON CYCLE DAY 2.
     Route: 042
     Dates: start: 20220928, end: 20220928

REACTIONS (2)
  - Febrile neutropenia [Recovered/Resolved]
  - Off label use [Unknown]

NARRATIVE: CASE EVENT DATE: 20221010
